FAERS Safety Report 13434903 (Version 8)
Quarter: 2017Q3

REPORT INFORMATION
  Report Type: Report from Study
  Country: CO (occurrence: CO)
  Receive Date: 20170413
  Receipt Date: 20170714
  Transmission Date: 20171127
  Serious: Yes (Hospitalization)
  Sender: FDA-Public Use
  Company Number: PHHY2017CO054323

PATIENT
  Sex: Male
  Weight: 53 kg

DRUGS (9)
  1. EXJADE [Suspect]
     Active Substance: DEFERASIROX
     Dosage: 1 DF, QD
     Route: 048
     Dates: start: 20170504, end: 20170603
  2. VANCOMYCIN [Concomitant]
     Active Substance: VANCOMYCIN
     Indication: PRODUCT USED FOR UNKNOWN INDICATION
     Route: 065
  3. ASPIRIN. [Concomitant]
     Active Substance: ASPIRIN
     Indication: PRODUCT USED FOR UNKNOWN INDICATION
     Route: 065
  4. EXJADE [Suspect]
     Active Substance: DEFERASIROX
     Indication: SICKLE CELL ANAEMIA
     Dosage: 1 DF, QD
     Route: 048
     Dates: start: 20140915
  5. VITAMIN B COMPLEX [Concomitant]
     Active Substance: CYANOCOBALAMIN\DEXPANTHENOL\NIACINAMIDE\PYRIDOXINE HYDROCHLORIDE\RIBOFLAVIN 5^-PHOSPHATE SODIUM\THIAMINE HYDROCHLORIDE\VITAMIN B COMPLEX
     Indication: PRODUCT USED FOR UNKNOWN INDICATION
     Route: 065
  6. ACETAMINOPHEN. [Concomitant]
     Active Substance: ACETAMINOPHEN
     Indication: PAIN
     Route: 065
  7. CARVEDILOL. [Concomitant]
     Active Substance: CARVEDILOL
     Indication: CARDIAC DISORDER
     Dosage: 6 MG, UNK
     Route: 065
  8. ERYTHROPOIETIN [Concomitant]
     Active Substance: ERYTHROPOIETIN
     Indication: PRODUCT USED FOR UNKNOWN INDICATION
     Route: 065
  9. FUROSEMIDE. [Concomitant]
     Active Substance: FUROSEMIDE
     Indication: PRODUCT USED FOR UNKNOWN INDICATION
     Route: 065

REACTIONS (17)
  - Vomiting [Recovered/Resolved]
  - Sepsis [Unknown]
  - Pain [Unknown]
  - Parathyroid disorder [Unknown]
  - Iron overload [Unknown]
  - Sickle cell anaemia [Unknown]
  - Disease recurrence [Unknown]
  - Dizziness [Recovered/Resolved]
  - Blood iron increased [Unknown]
  - Infection [Unknown]
  - Chest pain [Recovered/Resolved]
  - Pain [Recovered/Resolved]
  - Fatigue [Recovered/Resolved]
  - Cervical spinal stenosis [Unknown]
  - Abdominal pain [Unknown]
  - Haemoglobin decreased [Unknown]
  - Haemorrhage [Unknown]
